FAERS Safety Report 7368290-3 (Version None)
Quarter: 2011Q1

REPORT INFORMATION
  Report Type: 
  Country: None (occurrence: None)
  Receive Date: 20110311
  Receipt Date: 20110223
  Transmission Date: 20110831
  Serious: Yes (Hospitalization, Other)
  Sender: FDA-Public Use
  Company Number: CRC-11-052

PATIENT
  Sex: Male

DRUGS (1)
  1. DIGOXIN [Suspect]
     Dosage: ONE TABLET DAILY; ORAL
     Route: 048

REACTIONS (1)
  - CARDIOACTIVE DRUG LEVEL ABOVE THERAPEUTIC [None]
